FAERS Safety Report 18152133 (Version 2)
Quarter: 2020Q3

REPORT INFORMATION
  Report Type: Spontaneous
  Country: US (occurrence: US)
  Receive Date: 20200814
  Receipt Date: 20200820
  Transmission Date: 20201103
  Serious: No
  Sender: FDA-Public Use
  Company Number: US-PFIZER INC-2020310536

PATIENT
  Age: 37 Year
  Sex: Female
  Weight: 76.6 kg

DRUGS (5)
  1. PELAREOREP [Concomitant]
     Active Substance: PELAREOREP
     Indication: BREAST CANCER
     Dosage: 4.5 X10^10 TCID50
     Route: 042
     Dates: start: 20200624
  2. AVELUMAB [Concomitant]
     Active Substance: AVELUMAB
     Indication: BREAST CANCER
     Dosage: 10 MG/KG
     Route: 042
     Dates: start: 20200626
  3. IBUPROFEN. [Suspect]
     Active Substance: IBUPROFEN
     Indication: PYREXIA
     Dosage: UNK
     Dates: start: 20200729
  4. PACLITAXEL. [Concomitant]
     Active Substance: PACLITAXEL
     Indication: BREAST CANCER
     Dosage: 152 MG
     Route: 042
     Dates: start: 20200624
  5. TYLENOL [Suspect]
     Active Substance: ACETAMINOPHEN
     Indication: PYREXIA
     Dosage: UNK
     Dates: start: 20200729

REACTIONS (4)
  - Nausea [Unknown]
  - Drug ineffective [Unknown]
  - Palpitations [Unknown]
  - Myalgia [Unknown]

NARRATIVE: CASE EVENT DATE: 20200729
